FAERS Safety Report 8518922-9 (Version None)
Quarter: 2012Q3

REPORT INFORMATION
  Report Type: 
  Country: None (occurrence: None)
  Receive Date: 20120718
  Receipt Date: 20120712
  Transmission Date: 20120928
  Serious: Yes (Death)
  Sender: FDA-Public Use
  Company Number: US-GLAXOSMITHKLINE-A0984279A

PATIENT
  Age: 25 Year
  Sex: Female

DRUGS (6)
  1. KLONOPIN [Concomitant]
  2. LEVORA 0.15/30-21 [Concomitant]
  3. LAMICTAL [Suspect]
     Indication: MENTAL DISORDER
     Dosage: 150MG TWICE PER DAY
     Route: 048
  4. SAPHRIS [Concomitant]
  5. LAMOTRIGINE [Suspect]
     Indication: MENTAL DISORDER
     Dosage: 150MG TWICE PER DAY
     Route: 048
  6. ZOLOFT [Concomitant]

REACTIONS (2)
  - PNEUMONIA [None]
  - MULTI-ORGAN FAILURE [None]
